FAERS Safety Report 7506976-8 (Version None)
Quarter: 2011Q2

REPORT INFORMATION
  Report Type: 
  Country: None (occurrence: None)
  Receive Date: 20110526
  Receipt Date: 20110524
  Transmission Date: 20111010
  Serious: Yes (Death, Hospitalization, Other)
  Sender: FDA-Public Use
  Company Number: US-CEPHALON-2009029801

PATIENT
  Sex: Female
  Weight: 51 kg

DRUGS (5)
  1. PACLITAXEL [Concomitant]
     Indication: BREAST CANCER METASTATIC
     Dates: start: 20091208
  2. ERLOTINIB HYDROCHLORIDE [Suspect]
     Indication: BREAST CANCER METASTATIC
     Dates: start: 20090621, end: 20091123
  3. BEVACIZUMAB [Concomitant]
     Indication: BREAST CANCER METASTATIC
     Dates: start: 20091208
  4. DEXAMETHAOSNE [Concomitant]
  5. TREANDA [Suspect]
     Indication: BREAST CANCER METASTATIC
     Route: 042
     Dates: start: 20090616, end: 20091104

REACTIONS (4)
  - LYMPHOPENIA [None]
  - ACUTE RESPIRATORY DISTRESS SYNDROME [None]
  - SEPTIC SHOCK [None]
  - PNEUMOCYSTIS JIROVECI PNEUMONIA [None]
